FAERS Safety Report 13100031 (Version 3)
Quarter: 2017Q1

REPORT INFORMATION
  Report Type: Spontaneous
  Country: FR (occurrence: FR)
  Receive Date: 20170110
  Receipt Date: 20170202
  Transmission Date: 20170428
  Serious: Yes (Other)
  Sender: FDA-Public Use
  Company Number: FR-SUN PHARMACEUTICAL INDUSTRIES LTD-2016RR-130951

PATIENT
  Age: 71 Year
  Sex: Male

DRUGS (3)
  1. AZILECT [Interacting]
     Active Substance: RASAGILINE MESYLATE
     Indication: PARKINSONISM
     Dosage: 1 MG, QD
     Route: 048
     Dates: start: 20160306
  2. NEUPRO [Suspect]
     Active Substance: ROTIGOTINE
     Indication: PRODUCT USED FOR UNKNOWN INDICATION
     Dosage: 8 MG, QD
     Route: 065
     Dates: start: 20151223, end: 201603
  3. DEROXAT [Suspect]
     Active Substance: PAROXETINE HYDROCHLORIDE
     Indication: PARKINSONISM
     Dosage: UNK
     Route: 065
     Dates: start: 20160212, end: 20160306

REACTIONS (2)
  - Drug interaction [Unknown]
  - Serotonin syndrome [Unknown]
